FAERS Safety Report 8042593-1 (Version None)
Quarter: 2012Q1

REPORT INFORMATION
  Report Type: 
  Country: None (occurrence: None)
  Receive Date: 20120112
  Receipt Date: 20111025
  Transmission Date: 20120608
  Serious: No
  Sender: FDA-Public Use
  Company Number: US-BAUSCH-2011BL007273

PATIENT
  Age: 73 Year
  Sex: Male

DRUGS (1)
  1. ZIRGAN [Suspect]
     Indication: KERATITIS HERPETIC
     Route: 047
     Dates: start: 20111014

REACTIONS (4)
  - LACRIMATION INCREASED [None]
  - VISION BLURRED [None]
  - INFECTION [None]
  - EYE PAIN [None]
